FAERS Safety Report 9670036 (Version 2)
Quarter: 2013Q4

REPORT INFORMATION
  Report Type: Spontaneous
  Country: DK (occurrence: IT)
  Receive Date: 20131105
  Receipt Date: 20131119
  Transmission Date: 20140711
  Serious: Yes (Hospitalization)
  Sender: FDA-Public Use
  Company Number: IT-FRI-1000050768

PATIENT
  Age: 71 Year
  Sex: Female
  Weight: 45 kg

DRUGS (2)
  1. ESCITALOPRAM [Suspect]
     Indication: DEPRESSION
     Dosage: 10 MG
     Route: 048
     Dates: start: 20121101, end: 20130805
  2. CLONAZEPAM [Concomitant]
     Dosage: 10 DROPS
     Route: 048
     Dates: start: 20130301, end: 20130810

REACTIONS (4)
  - Inappropriate antidiuretic hormone secretion [Recovering/Resolving]
  - Confusional state [Recovering/Resolving]
  - Electrolyte imbalance [Recovering/Resolving]
  - Muscle rigidity [Recovering/Resolving]
